FAERS Safety Report 21553094 (Version 1)
Quarter: 2022Q4

REPORT INFORMATION
  Report Type: Spontaneous
  Country: DK (occurrence: DK)
  Receive Date: 20221104
  Receipt Date: 20221104
  Transmission Date: 20230112
  Serious: Yes (Other)
  Sender: FDA-Public Use
  Company Number: None

PATIENT
  Age: 64 Year
  Sex: Female

DRUGS (3)
  1. GLIVEC [Suspect]
     Active Substance: IMATINIB MESYLATE
     Indication: Gastrointestinal stromal tumour
     Dosage: 400 MG, QD (STRENGTH: UNKNOWN DOSE: INCREASED FROM 200 TO 300 MG A DAY 04 SEP2018 AND TO 400 MG A DA
     Route: 048
     Dates: start: 2005, end: 20190321
  2. STIVARGA [Suspect]
     Active Substance: REGORAFENIB
     Indication: Gastrointestinal stromal tumour
     Dosage: UNK, (STRENGTH: 40 MG DOSE: UNKNOWN)
     Route: 048
     Dates: start: 2019
  3. SUTENT [Suspect]
     Active Substance: SUNITINIB MALATE
     Indication: Gastrointestinal stromal tumour
     Dosage: 37.5 MG, (STRENGTH AND DOSE INTERVAL: UNKNOWN)
     Route: 048
     Dates: start: 20190322, end: 2019

REACTIONS (5)
  - Peripheral swelling [Unknown]
  - Dyspnoea exertional [Not Recovered/Not Resolved]
  - Palpitations [Unknown]
  - Cardiac failure chronic [Not Recovered/Not Resolved]
  - Chest pain [Unknown]

NARRATIVE: CASE EVENT DATE: 20190411
